FAERS Safety Report 20235300 (Version 2)
Quarter: 2024Q1

REPORT INFORMATION
  Report Type: Other
  Country: CA (occurrence: None)
  Receive Date: 20211228
  Receipt Date: 20240329
  Transmission Date: 20240410
  Serious: No
  Sender: FDA-Public Use
  Company Number: CA-ROCHE-2983809

PATIENT
  Sex: Female
  Weight: 37.5 kg

DRUGS (7)
  1. ACTEMRA [Suspect]
     Active Substance: TOCILIZUMAB
     Indication: Still^s disease
     Dosage: DRUG DOSE FIRST ADMINISTERED IS 162 MG MILLIGRAM(S)?TOCILIZUMAB 162 MG SUBCUTANEOUSLY EVERY 6 WEEKS
     Route: 058
     Dates: start: 20211216
  2. ACTEMRA [Suspect]
     Active Substance: TOCILIZUMAB
     Indication: Still^s disease
     Dosage: DRUG DOSE FIRST ADMINISTERED IS 160 MG MILLIGRAM(S)
     Route: 042
     Dates: start: 20170821, end: 20170912
  3. ACTEMRA [Suspect]
     Active Substance: TOCILIZUMAB
     Dosage: DRUG DOSE FIRST ADMINISTERED IS 160 MG MILLIGRAM(S)
     Route: 042
     Dates: start: 20171003, end: 20180424
  4. ACTEMRA [Suspect]
     Active Substance: TOCILIZUMAB
     Dosage: DRUG DOSE FIRST ADMINISTERED IS 160 MG MILLIGRAM(S)
     Route: 042
     Dates: start: 20180524, end: 20181211
  5. ACTEMRA [Suspect]
     Active Substance: TOCILIZUMAB
     Dosage: DRUG DOSE FIRST ADMINISTERED IS 160 MG MILLIGRAM(S)
     Route: 042
     Dates: start: 20190111, end: 20190521
  6. ACTEMRA [Suspect]
     Active Substance: TOCILIZUMAB
     Dosage: DRUG DOSE FIRST ADMINISTERED IS 160 MG MILLIGRAM(S)
     Route: 042
     Dates: start: 20190625, end: 20200901
  7. ACTEMRA [Suspect]
     Active Substance: TOCILIZUMAB
     Dosage: DRUG DOSE FIRST ADMINISTERED IS 160 MG MILLIGRAM(S)
     Route: 042
     Dates: start: 20201013, end: 20210127

REACTIONS (2)
  - Weight increased [Unknown]
  - Off label use [Unknown]
